FAERS Safety Report 21728017 (Version 2)
Quarter: 2022Q4

REPORT INFORMATION
  Report Type: Report from Study
  Country: US (occurrence: US)
  Receive Date: 20221214
  Receipt Date: 20221226
  Transmission Date: 20230113
  Serious: No
  Sender: FDA-Public Use
  Company Number: US-ABBVIE-4234441

PATIENT
  Sex: Male

DRUGS (3)
  1. HUMIRA [Suspect]
     Active Substance: ADALIMUMAB
     Indication: Psoriasis
     Dosage: ON HUMIRA FOR 3 TO 4 YEARS
     Route: 058
     Dates: start: 2015
  2. OTEZLA [Suspect]
     Active Substance: APREMILAST
     Indication: Product used for unknown indication
     Route: 065
  3. ENBREL [Suspect]
     Active Substance: ETANERCEPT
     Indication: Product used for unknown indication
     Route: 065

REACTIONS (6)
  - Overweight [Unknown]
  - Therapeutic product effect decreased [Recovering/Resolving]
  - Tooth infection [Recovering/Resolving]
  - Illness [Unknown]
  - Therapeutic product effect decreased [Unknown]
  - Toothache [Unknown]
